FAERS Safety Report 9267286 (Version 1)
Quarter: 2013Q2

REPORT INFORMATION
  Report Type: Spontaneous
  Country: NL (occurrence: NL)
  Receive Date: 20130502
  Receipt Date: 20130502
  Transmission Date: 20140414
  Serious: Yes (Other)
  Sender: FDA-Public Use
  Company Number: NL-ABBOTT-13P-114-1083519-00

PATIENT
  Sex: 0

DRUGS (2)
  1. ADALIMUMAB [Suspect]
     Indication: PSORIASIS
     Dosage: 80 MG LOADING DOSE
     Route: 058
  2. ADALIMUMAB [Suspect]

REACTIONS (1)
  - Gastric perforation [Unknown]
